FAERS Safety Report 9780785 (Version 1)
Quarter: 2013Q4

REPORT INFORMATION
  Report Type: Spontaneous
  Country: US (occurrence: US)
  Receive Date: 20131224
  Receipt Date: 20131224
  Transmission Date: 20140711
  Serious: Yes (Hospitalization)
  Sender: FDA-Public Use
  Company Number: US-SA-2013SA133627

PATIENT
  Sex: Female

DRUGS (2)
  1. APIDRA [Suspect]
     Route: 065
  2. LANTUS [Suspect]
     Route: 065

REACTIONS (1)
  - Adverse event [Unknown]
